FAERS Safety Report 19944166 (Version 1)
Quarter: 2021Q4

REPORT INFORMATION
  Report Type: Spontaneous
  Country: US (occurrence: US)
  Receive Date: 20211012
  Receipt Date: 20211012
  Transmission Date: 20220303
  Serious: Yes (Hospitalization)
  Sender: FDA-Public Use
  Company Number: US-SANOFI-00803005

PATIENT
  Sex: Female

DRUGS (8)
  1. DUPIXENT [Suspect]
     Active Substance: DUPILUMAB
     Indication: Dermatitis atopic
  2. CEFACLOR [Suspect]
     Active Substance: CEFACLOR
  3. CEPHALEXIN [Suspect]
     Active Substance: CEPHALEXIN
  4. CORTISONE [Concomitant]
     Active Substance: CORTISONE
  5. PREDNISONE [Concomitant]
     Active Substance: PREDNISONE
  6. CORTICOSTEROID NOS [Concomitant]
     Active Substance: CORTICOSTEROID NOS
     Route: 061
  7. EPIPEN [Concomitant]
     Active Substance: EPINEPHRINE
  8. ROCURONIUM [Concomitant]
     Active Substance: ROCURONIUM BROMIDE

REACTIONS (2)
  - Drug hypersensitivity [Unknown]
  - Inappropriate schedule of product administration [Unknown]
